FAERS Safety Report 8011618-1 (Version None)
Quarter: 2011Q4

REPORT INFORMATION
  Report Type: 
  Country: None (occurrence: None)
  Receive Date: 20111228
  Receipt Date: 20111220
  Transmission Date: 20120403
  Serious: Yes (Other)
  Sender: FDA-Public Use
  Company Number: UA-ABBOTT-11P-269-0885829-00

PATIENT
  Age: 16 Year
  Sex: Female

DRUGS (1)
  1. DEPAKENE [Suspect]
     Indication: PRODUCT USED FOR UNKNOWN INDICATION
     Dosage: 1000MG DAILY
     Route: 048
     Dates: start: 20060101

REACTIONS (2)
  - EPILEPSY [None]
  - POLYCYSTIC OVARIES [None]
